FAERS Safety Report 6546294-8 (Version None)
Quarter: 2010Q1

REPORT INFORMATION
  Report Type: 
  Country: None (occurrence: None)
  Receive Date: 20100122
  Receipt Date: 20100118
  Transmission Date: 20100710
  Serious: Yes (Death)
  Sender: FDA-Public Use
  Company Number: IT-ROCHE-680104

PATIENT
  Age: 59 Year
  Sex: Male

DRUGS (2)
  1. CEFTRIAXONE [Suspect]
     Indication: DRUG USE FOR UNKNOWN INDICATION
     Route: 023
  2. CEFTRIAXONE [Suspect]
     Dosage: ROUTE: INTRADERMAL, FORM: INJECTION
     Route: 023

REACTIONS (1)
  - ANAPHYLACTIC SHOCK [None]
